FAERS Safety Report 23058419 (Version 1)
Quarter: 2023Q4

REPORT INFORMATION
  Report Type: Spontaneous
  Country: US (occurrence: None)
  Receive Date: 20231011
  Receipt Date: 20231011
  Transmission Date: 20240109
  Serious: Yes (Hospitalization)
  Sender: FDA-Public Use
  Company Number: None

PATIENT
  Sex: Male

DRUGS (12)
  1. ENBREL [Suspect]
     Active Substance: ETANERCEPT
     Indication: Rheumatoid arthritis
     Dosage: FREQUENCY : WEEKLY;?
     Route: 058
     Dates: start: 20190829
  2. ENBREL [Suspect]
     Active Substance: ETANERCEPT
     Dosage: OTHER QUANTITY : 1 PEN (50 MG);?FREQUENCY : WEEKLY;?
     Route: 058
  3. ATORVASTATIN [Concomitant]
  4. CLOPIDOGREL [Concomitant]
     Active Substance: CLOPIDOGREL BISULFATE
  5. ELQUIS [Concomitant]
  6. FUROSEMIDE [Concomitant]
     Active Substance: FUROSEMIDE
  7. LISINOPRIL [Concomitant]
  8. METFORMIN [Concomitant]
  9. POTASSIUM POW CHLORIDE [Concomitant]
  10. PREDNISONE [Concomitant]
  11. PYRIDOSTIGM [Concomitant]
  12. VITAMIN D3 [Concomitant]
     Active Substance: CHOLECALCIFEROL

REACTIONS (2)
  - Hospitalisation [None]
  - Therapy interrupted [None]
